FAERS Safety Report 12108166 (Version 1)
Quarter: 2016Q1

REPORT INFORMATION
  Report Type: Other
  Country: US (occurrence: US)
  Receive Date: 20160224
  Receipt Date: 20160224
  Transmission Date: 20160526
  Serious: No
  Sender: FDA-Public Use
  Company Number: US-ACORDA-ACO_114697_2015

PATIENT
  Age: 52 Year
  Sex: Male

DRUGS (1)
  1. AMPYRA [Suspect]
     Active Substance: DALFAMPRIDINE
     Indication: MULTIPLE SCLEROSIS
     Dosage: 10 MG, Q 12 HRS

REACTIONS (6)
  - Irritability [Unknown]
  - Anger [Unknown]
  - Depressed mood [Unknown]
  - Hypoaesthesia [Unknown]
  - Paraesthesia [Unknown]
  - Hyposomnia [Unknown]
